FAERS Safety Report 9580670 (Version 1)
Quarter: 2013Q4

REPORT INFORMATION
  Report Type: Report from Study
  Country: FR (occurrence: FR)
  Receive Date: 20131002
  Receipt Date: 20131002
  Transmission Date: 20140711
  Serious: Yes (Death, Other)
  Sender: FDA-Public Use
  Company Number: FR-CELGENEUS-056-50794-13093223

PATIENT
  Sex: 0

DRUGS (4)
  1. VIDAZA [Suspect]
     Indication: MYELODYSPLASTIC SYNDROME
     Route: 058
  2. VIDAZA [Suspect]
     Indication: ACUTE MYELOID LEUKAEMIA
  3. VIDAZA [Suspect]
     Indication: CHRONIC MYELOMONOCYTIC LEUKAEMIA
  4. IDARUBICIN [Concomitant]
     Indication: MYELODYSPLASTIC SYNDROME
     Route: 041

REACTIONS (6)
  - Death [Fatal]
  - Haemorrhage [Unknown]
  - Pancytopenia [Unknown]
  - Febrile neutropenia [Unknown]
  - Adverse event [Unknown]
  - Disease progression [Unknown]
